FAERS Safety Report 6050194-X (Version None)
Quarter: 2009Q1

REPORT INFORMATION
  Report Type: 
  Country: None (occurrence: None)
  Receive Date: 20090121
  Receipt Date: 20090106
  Transmission Date: 20090719
  Serious: Yes (Death, Hospitalization)
  Sender: FDA-Public Use
  Company Number: 2008000184

PATIENT
  Age: 53 Year
  Sex: Male
  Weight: 178 kg

DRUGS (4)
  1. TARCEVA [Suspect]
     Indication: NON-SMALL CELL LUNG CANCER
     Dosage: 150 MG, QD, ORAL
     Route: 048
     Dates: start: 20071120, end: 20071206
  2. FRAGMIN [Concomitant]
  3. MARCUMAR [Concomitant]
  4. TRYPSIN (TRYPSIN) [Concomitant]

REACTIONS (5)
  - ASTHENIA [None]
  - DISSEMINATED INTRAVASCULAR COAGULATION [None]
  - FOLLICULITIS [None]
  - HEPATIC FAILURE [None]
  - HEPATITIS [None]
